FAERS Safety Report 4757145-6 (Version None)
Quarter: 2005Q3

REPORT INFORMATION
  Report Type: 
  Country: None (occurrence: None)
  Receive Date: 20050829
  Receipt Date: 20050819
  Transmission Date: 20060218
  Serious: Yes (Hospitalization, Other)
  Sender: FDA-Public Use
  Company Number: KII-2005-0018221

PATIENT
  Age: 36 Year
  Sex: Female

DRUGS (9)
  1. MORPHINE SULFATE [Suspect]
     Dosage: ORAL
     Route: 048
  2. VALPROIC ACID [Suspect]
     Dosage: ORAL
     Route: 048
  3. LITHIUM CARBONATE [Suspect]
     Dosage: ORAL
     Route: 048
  4. ACETAMINOPHEN [Suspect]
     Dosage: ORAL
     Route: 048
  5. OLANZAPINE [Suspect]
     Dosage: ORAL
     Route: 048
  6. CARISOPRODOL [Suspect]
     Dosage: ORAL
     Route: 048
  7. ARIPIPRAZOLE [Suspect]
     Dosage: ORAL
     Route: 048
  8. HYDROCODONE(HYDROCODONE) [Suspect]
     Dosage: ORAL
     Route: 048
  9. BENZODIAZEPINE DERIVATIVES [Suspect]
     Dosage: ORAL
     Route: 048

REACTIONS (6)
  - AMMONIA INCREASED [None]
  - AREFLEXIA [None]
  - MULTIPLE DRUG OVERDOSE [None]
  - SOMNOLENCE [None]
  - TACHYCARDIA [None]
  - VOMITING [None]
